FAERS Safety Report 25445917 (Version 1)
Quarter: 2025Q2

REPORT INFORMATION
  Report Type: Spontaneous
  Country: US (occurrence: US)
  Receive Date: 20250617
  Receipt Date: 20250617
  Transmission Date: 20250716
  Serious: Yes (Hospitalization, Other)
  Sender: AMGEN
  Company Number: US-AMGEN-USASL2025113440

PATIENT
  Age: 82 Year
  Sex: Male
  Weight: 68 kg

DRUGS (32)
  1. PREDNISONE [Suspect]
     Active Substance: PREDNISONE
     Indication: Product used for unknown indication
     Dosage: 5 MILLIGRAM, QD, (FOR 90 DAYS)
     Route: 048
     Dates: start: 20240730
  2. CYCLOSPORINE [Concomitant]
     Active Substance: CYCLOSPORINE
     Route: 065
  3. LASIX [Concomitant]
     Active Substance: FUROSEMIDE
     Route: 065
  4. PROPRANOLOL [Concomitant]
     Active Substance: PROPRANOLOL HYDROCHLORIDE
     Dosage: 60 MILLIGRAM, QD
     Route: 048
  5. JARDIANCE [Concomitant]
     Active Substance: EMPAGLIFLOZIN
     Dosage: 10 MILLIGRAM, QD
     Route: 048
  6. ATORVASTATIN [Concomitant]
     Active Substance: ATORVASTATIN
     Dosage: 10 MILLIGRAM, QD
     Route: 048
  7. ALBUTEROL SULFATE [Concomitant]
     Active Substance: ALBUTEROL SULFATE
     Route: 045
  8. VITAMIN D3 [Concomitant]
     Active Substance: CHOLECALCIFEROL
     Dosage: 50 MICROGRAM, QD
     Route: 048
  9. PROLONG [Concomitant]
     Active Substance: BENZOCAINE
     Route: 065
  10. Emma [Concomitant]
     Route: 065
  11. EZETIMIBE [Concomitant]
     Active Substance: EZETIMIBE
     Route: 065
  12. DIETARY SUPPLEMENT [Concomitant]
     Active Substance: DIETARY SUPPLEMENT
     Dosage: UNK UNK, QD
     Route: 065
  13. AMLODIPINE [Concomitant]
     Active Substance: AMLODIPINE BESYLATE
     Dosage: 5 MILLIGRAM, QD
     Route: 048
  14. WELCHOL [Concomitant]
     Active Substance: COLESEVELAM HYDROCHLORIDE
     Dosage: 625 MILLIGRAM, BID
     Route: 048
  15. Viteyes [Concomitant]
     Route: 065
  16. OMEPRAZOLE [Concomitant]
     Active Substance: OMEPRAZOLE
     Dosage: 20 MILLIGRAM, QD
     Route: 048
  17. CYANOCOBALAMIN [Concomitant]
     Active Substance: CYANOCOBALAMIN
     Dosage: 1000 MICROGRAM, QD
     Route: 048
  18. BEVESPI AEROSPHERE [Concomitant]
     Active Substance: FORMOTEROL FUMARATE\GLYCOPYRROLATE
     Dosage: UNK UNK, QD, (9-4.8MCG/ACT HFA)
     Route: 045
  19. GENGRAF [Concomitant]
     Active Substance: CYCLOSPORINE
     Dosage: 25 MILLIGRAM, BID
     Route: 048
     Dates: start: 20240930
  20. GENGRAF [Concomitant]
     Active Substance: CYCLOSPORINE
     Dosage: 100 MILLIGRAM, BID
     Route: 048
  21. TAMSULOSIN [Concomitant]
     Active Substance: TAMSULOSIN
     Dosage: 0.4 MILLIGRAM, QD
     Route: 048
     Dates: start: 20250505
  22. SODIUM BICARBONATE [Concomitant]
     Active Substance: SODIUM BICARBONATE
     Dosage: 325 MILLIGRAM, BID
     Route: 048
     Dates: start: 20250505
  23. SODIUM BICARBONATE [Concomitant]
     Active Substance: SODIUM BICARBONATE
     Dosage: 650 MILLIGRAM, BID
     Route: 048
  24. MAGNESIUM [Concomitant]
     Active Substance: MAGNESIUM
     Dosage: 250 MILLIGRAM, BID
     Route: 048
     Dates: start: 20250404
  25. FINASTERIDE [Concomitant]
     Active Substance: FINASTERIDE
     Dosage: 5 MILLIGRAM, QD
     Route: 048
     Dates: start: 20250102
  26. CINACALCET [Concomitant]
     Active Substance: CINACALCET
     Dosage: 30 MILLIGRAM, QD
     Route: 048
     Dates: start: 20241202
  27. GABAPENTIN [Concomitant]
     Active Substance: GABAPENTIN
     Dosage: 300 MILLIGRAM, BID
     Route: 048
     Dates: start: 20240410
  28. ASPIRIN [Concomitant]
     Active Substance: ASPIRIN
     Dosage: 81 MILLIGRAM, QD
     Route: 048
     Dates: start: 20231020
  29. ACETAMINOPHEN [Concomitant]
     Active Substance: ACETAMINOPHEN
     Route: 065
  30. LIDOCAINE [Concomitant]
     Active Substance: LIDOCAINE
     Route: 065
  31. TYLENOL [Concomitant]
     Active Substance: ACETAMINOPHEN
     Route: 065
  32. EMPAGLIFLOZIN [Concomitant]
     Active Substance: EMPAGLIFLOZIN
     Route: 065

REACTIONS (22)
  - Gastroenteritis norovirus [Unknown]
  - Clostridium difficile infection [Unknown]
  - Leukopenia [Unknown]
  - Thrombocytopenia [Unknown]
  - Metabolic acidosis [Unknown]
  - Pulmonary hypertension [Unknown]
  - Diabetes mellitus [Unknown]
  - Pneumonia [Unknown]
  - Asthenia [Unknown]
  - Diarrhoea [Recovering/Resolving]
  - Blood creatinine increased [Unknown]
  - Dehydration [Unknown]
  - Exercise tolerance decreased [Unknown]
  - Dyspnoea exertional [Unknown]
  - Nocturia [Unknown]
  - Back pain [Unknown]
  - Intervertebral disc disorder [Unknown]
  - Fall [Unknown]
  - Vertebral foraminal stenosis [Unknown]
  - Blood cholesterol increased [Unknown]
  - Muscular weakness [Unknown]
  - Muscle atrophy [Unknown]
